FAERS Safety Report 16543183 (Version 1)
Quarter: 2019Q3

REPORT INFORMATION
  Report Type: Spontaneous
  Country: DE (occurrence: DE)
  Receive Date: 20190709
  Receipt Date: 20190709
  Transmission Date: 20191004
  Serious: Yes (Life-Threatening, Hospitalization)
  Sender: FDA-Public Use
  Company Number: DE-TEVA-2019-DE-1073789

PATIENT
  Age: 83 Year
  Sex: Female
  Weight: 75 kg

DRUGS (11)
  1. L-THYROX [Concomitant]
     Active Substance: LEVOTHYROXINE SODIUM
     Dosage: 25 MICROGRAMS, 1-0-0-0, TABLETS
     Route: 048
  2. MARCUMAR [Suspect]
     Active Substance: PHENPROCOUMON
     Dosage: 3 MG, ACCORDING TO INR, TABLETS
     Route: 048
  3. SITAGLIPTIN [Concomitant]
     Active Substance: SITAGLIPTIN
     Dosage: 100 MG, 1-0-0-0, TABLETS
     Route: 048
  4. ATENOLOL. [Concomitant]
     Active Substance: ATENOLOL
     Dosage: 100 MG, 0.5-0-0-0-0 TABLETS
     Route: 048
  5. RAMIPRIL. [Concomitant]
     Active Substance: RAMIPRIL
     Dosage: 5 MG, 1-0-0-0, TABLET
     Route: 048
  6. SIMVASTATIN. [Concomitant]
     Active Substance: SIMVASTATIN
     Dosage: 20 MG, 0-0-1-0, TABLETS
     Route: 048
  7. ALLOPURINOL. [Concomitant]
     Active Substance: ALLOPURINOL
     Dosage: 300 MG, 0.5-0-0-0, TABLETS
     Route: 048
  8. PANTOZOL 40 MG [Concomitant]
     Dosage: 40 MG, 1-0-1-0, TABLETS
     Route: 048
  9. NOVODIGAL 0,2MG [Concomitant]
     Dosage: 0.2 MG, 1-0-0-0, TABLETS
     Route: 048
  10. TORASEMID [Concomitant]
     Active Substance: TORSEMIDE
     Dosage: 10 MG, 2-0-0-0, TABLETS
     Route: 048
  11. CLOPIDOGREL [Suspect]
     Active Substance: CLOPIDOGREL BISULFATE
     Dosage: 75 MG, 1-0-0-0, TABLETS
     Route: 048

REACTIONS (6)
  - Breast pain [Unknown]
  - Medication error [Unknown]
  - Epistaxis [Unknown]
  - Dyspnoea [Unknown]
  - Haematochezia [Unknown]
  - Product prescribing error [Unknown]
